FAERS Safety Report 11861177 (Version 1)
Quarter: 2015Q4

REPORT INFORMATION
  Report Type: Spontaneous
  Country: US (occurrence: US)
  Receive Date: 20151222
  Receipt Date: 20151222
  Transmission Date: 20160305
  Serious: No
  Sender: FDA-Public Use
  Company Number: US-AVANIR PHARMACEUTICALS, INC.-2012NUEUSA00079

PATIENT
  Sex: Female
  Weight: 72.56 kg

DRUGS (5)
  1. TRAZODONE [Concomitant]
     Active Substance: TRAZODONE HYDROCHLORIDE
     Indication: INSOMNIA
     Dosage: 150 MG, HS
     Route: 048
     Dates: start: 2010
  2. VALIUM [Concomitant]
     Active Substance: DIAZEPAM
     Indication: ANXIETY
  3. VALIUM [Concomitant]
     Active Substance: DIAZEPAM
     Indication: SLEEP DISORDER
     Dosage: 5 MG, HS, PRN
     Route: 048
     Dates: start: 2010
  4. MORPHINE [Concomitant]
     Active Substance: MORPHINE
     Indication: PAIN
     Dosage: UNK, PRN
     Dates: start: 2008
  5. NUEDEXTA [Suspect]
     Active Substance: DEXTROMETHORPHAN HYDROBROMIDE\QUINIDINE SULFATE
     Indication: PAIN
     Dosage: 1 CAP, QD
     Route: 048
     Dates: start: 201110, end: 201202

REACTIONS (11)
  - Hair colour changes [Recovered/Resolved]
  - Fall [Recovered/Resolved]
  - Palpitations [Recovered/Resolved]
  - Skin discolouration [Recovering/Resolving]
  - Dizziness [Recovered/Resolved]
  - Balance disorder [Recovered/Resolved]
  - Sleep attacks [Recovered/Resolved]
  - Somnambulism [None]
  - Diarrhoea [Recovered/Resolved]
  - Vitreous floaters [Recovering/Resolving]
  - Chest pain [Recovered/Resolved]

NARRATIVE: CASE EVENT DATE: 2011
